FAERS Safety Report 16636322 (Version 1)
Quarter: 2019Q3

REPORT INFORMATION
  Report Type: Spontaneous
  Country: IT (occurrence: IT)
  Receive Date: 20190726
  Receipt Date: 20190726
  Transmission Date: 20191004
  Serious: Yes (Other)
  Sender: FDA-Public Use
  Company Number: IT-MYLANLABS-2019M1069281

PATIENT
  Age: 68 Year
  Sex: Male

DRUGS (3)
  1. EZETIMIBE. [Suspect]
     Active Substance: EZETIMIBE
     Indication: TYPE IIA HYPERLIPIDAEMIA
     Dosage: 10 MILLIGRAM, QD
  2. EVOLOCUMAB [Suspect]
     Active Substance: EVOLOCUMAB
     Indication: PRODUCT USED FOR UNKNOWN INDICATION
     Dosage: 140 MILLIGRAM, QW
     Route: 058
  3. SIMVASTATIN. [Suspect]
     Active Substance: SIMVASTATIN
     Indication: TYPE IIA HYPERLIPIDAEMIA
     Dosage: 10 MILLIGRAM, QD

REACTIONS (2)
  - Autoimmune hepatitis [Recovering/Resolving]
  - Hepatocellular injury [Recovering/Resolving]

NARRATIVE: CASE EVENT DATE: 20181101
